FAERS Safety Report 4374069-7 (Version None)
Quarter: 2004Q2

REPORT INFORMATION
  Report Type: 
  Country: None (occurrence: None)
  Receive Date: 20040607
  Receipt Date: 20040528
  Transmission Date: 20050107
  Serious: Yes (Hospitalization)
  Sender: FDA-Public Use
  Company Number: JP-JNJFOC-20040501730

PATIENT
  Sex: Female

DRUGS (2)
  1. ITRIZOLE [Suspect]
     Indication: TINEA PEDIS
     Route: 049
     Dates: start: 20040422, end: 20040503
  2. ITRIZOLE [Suspect]
     Indication: ONYCHOMYCOSIS
     Route: 049
     Dates: start: 20040422, end: 20040503

REACTIONS (2)
  - ERYTHEMA MULTIFORME [None]
  - MEDICATION ERROR [None]
